FAERS Safety Report 5172264-0 (Version None)
Quarter: 2006Q4

REPORT INFORMATION
  Report Type: 
  Country: None (occurrence: None)
  Receive Date: 20061205
  Receipt Date: 20061121
  Transmission Date: 20070319
  Serious: Yes (Death, Other)
  Sender: FDA-Public Use
  Company Number: 2006088632

PATIENT
  Age: 44 Year
  Sex: Female

DRUGS (14)
  1. NEURONTIN [Suspect]
     Indication: PAIN
     Dates: end: 20030623
  2. TORPOL (METOPROLOL) [Concomitant]
  3. PROTONIX [Concomitant]
  4. CLONIDINE [Concomitant]
  5. CARISOPRODOL [Concomitant]
  6. LORAZEPAM [Concomitant]
  7. HYDROCODONE BITARTRATE [Concomitant]
  8. OXYCODONE HCL [Concomitant]
  9. FLUOXETINE [Concomitant]
  10. LOVASTATIN [Concomitant]
  11. FOSAMAX [Concomitant]
  12. PREVACID [Concomitant]
  13. NITROQUICK (GLYCERYL TRINITRATE) [Concomitant]
  14. MIACALCIN [Concomitant]

REACTIONS (13)
  - AGGRESSION [None]
  - APNOEA [None]
  - BRONCHOPNEUMONIA [None]
  - COMPLETED SUICIDE [None]
  - DIFFUSE ALVEOLAR DAMAGE [None]
  - DRUG TOXICITY [None]
  - FEAR OF DEATH [None]
  - GASTROINTESTINAL NECROSIS [None]
  - HYPOXIC ENCEPHALOPATHY [None]
  - LOSS OF CONSCIOUSNESS [None]
  - PULMONARY INFARCTION [None]
  - PULSE ABSENT [None]
  - SUICIDAL IDEATION [None]
